FAERS Safety Report 9999111 (Version 1)
Quarter: 2014Q1

REPORT INFORMATION
  Report Type: Spontaneous
  Country: US (occurrence: None)
  Receive Date: 20140311
  Receipt Date: 20140311
  Transmission Date: 20141002
  Serious: Yes (Other)
  Sender: FDA-Public Use
  Company Number: None

PATIENT
  Age: 49 Year
  Sex: Female
  Weight: 63.5 kg

DRUGS (2)
  1. ADVIL LIQUI-GELS 200MG PFIZER [Suspect]
     Indication: HEADACHE
     Dosage: 1 PILL 4-6 HR
     Route: 048
     Dates: start: 20140216
  2. ADVIL LIQUI-GELS 200MG PFIZER [Suspect]
     Indication: PYREXIA
     Dosage: 1 PILL 4-6 HR
     Route: 048
     Dates: start: 20140216

REACTIONS (1)
  - Hypersensitivity [None]
